FAERS Safety Report 20768967 (Version 1)
Quarter: 2022Q2

REPORT INFORMATION
  Report Type: Spontaneous
  Country: US (occurrence: US)
  Receive Date: 20220429
  Receipt Date: 20220429
  Transmission Date: 20220721
  Serious: No
  Sender: FDA-Public Use
  Company Number: US-TARO-2021TAR00958

PATIENT

DRUGS (1)
  1. FLUOROURACIL [Suspect]
     Active Substance: FLUOROURACIL
     Indication: Basal cell carcinoma
     Dosage: OD, ONCE A DAY AT NIGHT TOPICALLY ON FACE
     Route: 061
     Dates: start: 202108

REACTIONS (4)
  - Condition aggravated [Not Recovered/Not Resolved]
  - Application site scab [Not Recovered/Not Resolved]
  - Skin reaction [Not Recovered/Not Resolved]
  - Inappropriate schedule of product administration [Unknown]
